FAERS Safety Report 8826983 (Version 5)
Quarter: 2013Q2

REPORT INFORMATION
  Report Type: Spontaneous
  Country: US (occurrence: US)
  Receive Date: 20121008
  Receipt Date: 20130422
  Transmission Date: 20140414
  Serious: Yes (Hospitalization)
  Sender: FDA-Public Use
  Company Number: US-BIOGENIDEC-2012BI042460

PATIENT
  Age: 58 Year
  Sex: Female

DRUGS (2)
  1. TYSABRI [Suspect]
     Indication: MULTIPLE SCLEROSIS
     Route: 042
     Dates: start: 20111208
  2. WARFARIN [Concomitant]
     Indication: THROMBOSIS

REACTIONS (3)
  - Dyspnoea [Unknown]
  - Deep vein thrombosis [Not Recovered/Not Resolved]
  - Pulmonary thrombosis [Recovered/Resolved]
